FAERS Safety Report 4319071-6 (Version None)
Quarter: 2004Q1

REPORT INFORMATION
  Report Type: 
  Country: None (occurrence: None)
  Receive Date: 20040318
  Receipt Date: 20040318
  Transmission Date: 20041129
  Serious: Yes (Disabling)
  Sender: FDA-Public Use
  Company Number: None

PATIENT
  Age: 56 Year
  Sex: Female

DRUGS (1)
  1. LIPITOR [Suspect]
     Indication: BLOOD CHOLESTEROL INCREASED
     Dosage: 40 MG 1/DAY ORAL
     Route: 048
     Dates: start: 20020618, end: 20020801

REACTIONS (3)
  - ABDOMINAL PAIN UPPER [None]
  - DIFFICULTY IN WALKING [None]
  - MYALGIA [None]
